FAERS Safety Report 6290987-7 (Version None)
Quarter: 2009Q3

REPORT INFORMATION
  Report Type: 
  Country: None (occurrence: None)
  Receive Date: 20090730
  Receipt Date: 20090718
  Transmission Date: 20100115
  Serious: Yes (Hospitalization)
  Sender: FDA-Public Use
  Company Number: DE-PFIZER INC-2009246827

PATIENT
  Age: 33 Year

DRUGS (3)
  1. ATARAX [Suspect]
     Dosage: 400 MG, ONCE
     Route: 048
     Dates: start: 20090718, end: 20090718
  2. SERTRALINE [Suspect]
     Dosage: 500 MG, ONCE
     Route: 048
     Dates: start: 20090718, end: 20090718
  3. DICLO [Suspect]
     Dosage: 500 MG, ONCE
     Route: 048
     Dates: start: 20090718, end: 20090718

REACTIONS (5)
  - DRUG TOXICITY [None]
  - FATIGUE [None]
  - MYDRIASIS [None]
  - SUICIDE ATTEMPT [None]
  - TACHYCARDIA [None]
